FAERS Safety Report 4358608-8 (Version None)
Quarter: 2004Q2

REPORT INFORMATION
  Report Type: 
  Country: None (occurrence: None)
  Receive Date: 20040514
  Receipt Date: 20040426
  Transmission Date: 20050107
  Serious: Yes (Hospitalization)
  Sender: FDA-Public Use
  Company Number: 2004-DE-02252GD

PATIENT
  Age: 37 Year
  Sex: Female

DRUGS (3)
  1. NEVIRAPINE (NEVIRAPINE) (NR) [Suspect]
     Indication: HIV INFECTION
     Dosage: 400 MG (TWICE DALY)
  2. COMBIVIR [Suspect]
     Dosage: 600 MG ZIDOVUDINE AND 300 MG LAMIVUDINE (TWICE DAILY) PO
     Route: 048
  3. ABACAVIR (ABACAVIR) (NR) [Suspect]
     Indication: HIV INFECTION
     Dosage: 600 MG (N)

REACTIONS (22)
  - ABNORMAL BEHAVIOUR [None]
  - AFFECT LABILITY [None]
  - AGGRESSION [None]
  - CATATONIA [None]
  - CRYING [None]
  - DIET REFUSAL [None]
  - EMOTIONAL DISTRESS [None]
  - FAECAL INCONTINENCE [None]
  - HALLUCINATION, AUDITORY [None]
  - INAPPROPRIATE AFFECT [None]
  - MENTAL STATUS CHANGES [None]
  - MUTISM [None]
  - NUCLEAR MAGNETIC RESONANCE IMAGING BRAIN ABNORMAL [None]
  - PERSECUTORY DELUSION [None]
  - PHYSICAL ASSAULT [None]
  - PSYCHOTIC DISORDER [None]
  - RADIAL NERVE PALSY [None]
  - REFUSAL OF TREATMENT BY PATIENT [None]
  - STARING [None]
  - THOUGHT INSERTION [None]
  - TREMOR [None]
  - URINARY INCONTINENCE [None]
